FAERS Safety Report 8343041-4 (Version None)
Quarter: 2012Q2

REPORT INFORMATION
  Report Type: 
  Country: None (occurrence: None)
  Receive Date: 20120508
  Receipt Date: 20120423
  Transmission Date: 20120825
  Serious: Yes (Death, Other)
  Sender: FDA-Public Use
  Company Number: PHHY2009KR23735

PATIENT
  Sex: Female
  Weight: 55 kg

DRUGS (1)
  1. EXJADE [Suspect]
     Indication: IRON OVERLOAD
     Dosage: 10 MG/KG, UNK
     Route: 048
     Dates: start: 20080702, end: 20080722

REACTIONS (3)
  - RASH [None]
  - GASTRIC HAEMORRHAGE [None]
  - DEATH [None]
